FAERS Safety Report 5432188-8 (Version None)
Quarter: 2007Q3

REPORT INFORMATION
  Report Type: 
  Country: None (occurrence: None)
  Receive Date: 20070830
  Receipt Date: 20070818
  Transmission Date: 20080115
  Serious: Yes (Hospitalization, Other)
  Sender: FDA-Public Use
  Company Number: US-PFIZER INC-2007036071

PATIENT
  Sex: Male
  Weight: 97.5 kg

DRUGS (24)
  1. EXUBERA [Suspect]
     Indication: TYPE 2 DIABETES MELLITUS
     Dates: start: 20070327, end: 20070502
  2. VITAMIN B-12 [Concomitant]
     Route: 060
  3. PLAVIX [Concomitant]
     Route: 048
  4. ASPIRIN [Concomitant]
     Route: 048
  5. AMBIEN [Concomitant]
     Route: 048
  6. VITAMIN CAP [Concomitant]
  7. VITAMIN E [Concomitant]
     Route: 048
  8. FISH OIL [Concomitant]
     Route: 048
  9. TAMSULOSIN HCL [Concomitant]
  10. TOPROL-XL [Concomitant]
     Route: 048
  11. ACIPHEX [Concomitant]
  12. GLUCOSAMINE [Concomitant]
  13. SAW PALMETTO [Concomitant]
  14. COENZYME Q10 [Concomitant]
  15. METAGLIP [Concomitant]
     Route: 048
  16. CRESTOR [Concomitant]
     Route: 048
  17. NIACIN [Concomitant]
     Route: 048
  18. ALTACE [Concomitant]
     Route: 048
  19. ZETIA [Concomitant]
     Route: 048
  20. AVANDIA [Concomitant]
     Route: 048
  21. BYETTA [Concomitant]
  22. LEXAPRO [Concomitant]
     Route: 048
  23. AVODART [Concomitant]
     Route: 048
  24. FUROSEMIDE [Concomitant]
     Route: 048

REACTIONS (24)
  - ARTHRALGIA [None]
  - ASTHENIA [None]
  - CONTUSION [None]
  - CONVULSION [None]
  - DYSKINESIA [None]
  - DYSPHAGIA [None]
  - DYSPNOEA [None]
  - ERECTILE DYSFUNCTION [None]
  - FATIGUE [None]
  - GLOSSODYNIA [None]
  - HYPOAESTHESIA [None]
  - JOINT STIFFNESS [None]
  - LIBIDO DECREASED [None]
  - NOCTURIA [None]
  - PARAESTHESIA [None]
  - POLLAKIURIA [None]
  - SLEEP DISORDER [None]
  - SOMNOLENCE [None]
  - SWOLLEN TONGUE [None]
  - THIRST [None]
  - TONGUE BLACK HAIRY [None]
  - TONGUE INJURY [None]
  - TREMOR [None]
  - URINARY HESITATION [None]
